FAERS Safety Report 7000400-X (Version None)
Quarter: 2010Q3

REPORT INFORMATION
  Report Type: 
  Country: None (occurrence: None)
  Receive Date: 20100920
  Receipt Date: 20100309
  Transmission Date: 20110219
  Serious: No
  Sender: FDA-Public Use
  Company Number: US-ASTRAZENECA-2010SE10262

PATIENT
  Age: 22 Year
  Sex: Male
  Weight: 61.2 kg

DRUGS (2)
  1. SEROQUEL [Suspect]
     Indication: KLINEFELTER'S SYNDROME
     Route: 048
  2. SEROQUEL [Suspect]
     Route: 048

REACTIONS (6)
  - BODY TEMPERATURE FLUCTUATION [None]
  - FEELING JITTERY [None]
  - HYPERSOMNIA [None]
  - INSOMNIA [None]
  - MALAISE [None]
  - WRONG TECHNIQUE IN DRUG USAGE PROCESS [None]
